FAERS Safety Report 6131087-6 (Version None)
Quarter: 2009Q1

REPORT INFORMATION
  Report Type: 
  Country: None (occurrence: None)
  Receive Date: 20090325
  Receipt Date: 20090318
  Transmission Date: 20090719
  Serious: Yes (Other)
  Sender: FDA-Public Use
  Company Number: BR-ASTRAZENECA-2009UW07111

PATIENT
  Age: 21 Year
  Sex: Female
  Weight: 50 kg

DRUGS (4)
  1. SEROQUEL [Suspect]
     Route: 048
  2. SEROQUEL [Suspect]
     Dosage: FORTY TO FIFTY TABLETS
     Route: 048
     Dates: start: 20090312, end: 20090312
  3. AMITRIPTYLINE [Suspect]
     Route: 048
  4. AMITRIPTYLINE [Suspect]
     Dosage: 20 TABLETS
     Route: 048
     Dates: start: 20090312, end: 20090312

REACTIONS (2)
  - MULTIPLE DRUG OVERDOSE [None]
  - SOMNOLENCE [None]
